FAERS Safety Report 6097128-X (Version None)
Quarter: 2009Q1

REPORT INFORMATION
  Report Type: 
  Country: None (occurrence: None)
  Receive Date: 20090227
  Receipt Date: 20080226
  Transmission Date: 20090719
  Serious: No
  Sender: FDA-Public Use
  Company Number: US-PFIZER INC-2008015845

PATIENT
  Sex: Male
  Weight: 52.2 kg

DRUGS (5)
  1. DETROL LA [Suspect]
     Indication: POLLAKIURIA
     Dosage: 4 MG, 1X/DAY
     Dates: start: 20080201
  2. DETROL LA [Suspect]
     Indication: HYPERTONIC BLADDER
  3. VIREAD [Concomitant]
     Dosage: UNK
  4. EPIVIR [Concomitant]
     Dosage: UNK
  5. FOSAMPRENAVIR [Concomitant]
     Dosage: UNK

REACTIONS (9)
  - DRUG EFFECT DECREASED [None]
  - DYSSTASIA [None]
  - FATIGUE [None]
  - FEELING ABNORMAL [None]
  - GASTRIC DISORDER [None]
  - HEADACHE [None]
  - HYPOTONIA [None]
  - LETHARGY [None]
  - SLEEP DISORDER [None]
